FAERS Safety Report 6685010-6 (Version None)
Quarter: 2010Q2

REPORT INFORMATION
  Report Type: 
  Country: None (occurrence: None)
  Receive Date: 20100416
  Receipt Date: 20100217
  Transmission Date: 20101027
  Serious: Yes (Hospitalization, Disabling)
  Sender: FDA-Public Use
  Company Number: ES-ELI_LILLY_AND_COMPANY-ES201004001466

PATIENT
  Sex: Female
  Weight: 70 kg

DRUGS (3)
  1. FORTEO [Suspect]
     Indication: OSTEOPOROSIS
     Dosage: 20 UG, DAILY (1/D)
     Route: 058
     Dates: start: 20090903, end: 20100101
  2. SINTROM [Concomitant]
     Dosage: UNK, UNKNOWN
     Route: 048
  3. MORFINA                            /00036302/ [Concomitant]
     Indication: PAIN
     Dosage: UNK, UNKNOWN
     Route: 065

REACTIONS (7)
  - ABASIA [None]
  - ANAEMIA [None]
  - HYPOTENSION [None]
  - INFECTED SKIN ULCER [None]
  - LOSS OF CONSCIOUSNESS [None]
  - SKIN ULCER [None]
  - VIRAL INFECTION [None]
